FAERS Safety Report 23130738 (Version 1)
Quarter: 2023Q4

REPORT INFORMATION
  Report Type: Spontaneous
  Country: GR (occurrence: GR)
  Receive Date: 20231031
  Receipt Date: 20231031
  Transmission Date: 20240110
  Serious: Yes (Other)
  Sender: FDA-Public Use
  Company Number: GR-PFIZER INC-202300301693

PATIENT
  Age: 56 Year
  Sex: Male
  Weight: 60 kg

DRUGS (2)
  1. PEMBROLIZUMAB [Suspect]
     Active Substance: PEMBROLIZUMAB
     Indication: Metastatic renal cell carcinoma
     Dosage: UNK
  2. AXITINIB [Suspect]
     Active Substance: AXITINIB
     Indication: Metastatic renal cell carcinoma
     Dosage: 5 MG, 2X/DAY
     Route: 048
     Dates: start: 20230817, end: 20230908

REACTIONS (6)
  - Hypothermia [Recovered/Resolved]
  - Hypertension [Recovered/Resolved]
  - Pyrexia [Unknown]
  - Inflammatory marker increased [Unknown]
  - Bone pain [Unknown]
  - C-reactive protein increased [Unknown]

NARRATIVE: CASE EVENT DATE: 20230908
